FAERS Safety Report 20008119 (Version 7)
Quarter: 2023Q4

REPORT INFORMATION
  Report Type: Report from Study
  Country: US (occurrence: US)
  Receive Date: 20211028
  Receipt Date: 20231110
  Transmission Date: 20240109
  Serious: Yes (Hospitalization, Other)
  Sender: FDA-Public Use
  Company Number: US-TAKEDA-US202023599

PATIENT
  Age: 81 Year
  Sex: Female

DRUGS (2)
  1. HUMAN IMMUNOGLOBULIN G\HYALURONIDASE RECOMBINANT HUMAN [Suspect]
     Active Substance: HUMAN IMMUNOGLOBULIN G\HYALURONIDASE (HUMAN RECOMBINANT)
     Indication: Primary immunodeficiency syndrome
     Dosage: 30 GRAM, Q3WEEKS
     Route: 065
  2. HUMAN IMMUNOGLOBULIN G\HYALURONIDASE RECOMBINANT HUMAN [Suspect]
     Active Substance: HUMAN IMMUNOGLOBULIN G\HYALURONIDASE (HUMAN RECOMBINANT)
     Dosage: 35 GRAM, Q3WEEKS
     Route: 065
     Dates: end: 2020

REACTIONS (22)
  - Chronic obstructive pulmonary disease [Unknown]
  - Renal impairment [Unknown]
  - Pain [Unknown]
  - Peripheral swelling [Unknown]
  - Limb discomfort [Unknown]
  - Fear [Unknown]
  - Dehydration [Unknown]
  - Muscular weakness [Unknown]
  - Nasal congestion [Unknown]
  - Cough [Unknown]
  - Constipation [Unknown]
  - Aneurysm [Unknown]
  - Fall [Unknown]
  - Scapula fracture [Unknown]
  - Illness [Unknown]
  - Malaise [Unknown]
  - Back pain [Unknown]
  - Migraine [Unknown]
  - Nausea [Unknown]
  - Dyspnoea [Not Recovered/Not Resolved]
  - Product dose omission issue [Unknown]
  - Inappropriate schedule of product administration [Unknown]

NARRATIVE: CASE EVENT DATE: 20200930
